FAERS Safety Report 6705088-0 (Version None)
Quarter: 2010Q2

REPORT INFORMATION
  Report Type: 
  Country: None (occurrence: None)
  Receive Date: 20100430
  Receipt Date: 20100108
  Transmission Date: 20101027
  Serious: No
  Sender: FDA-Public Use
  Company Number: US-ASTRAZENECA-2010SE00446

PATIENT
  Age: 56 Year
  Sex: Female
  Weight: 98.9 kg

DRUGS (5)
  1. NEXIUM [Suspect]
     Route: 048
     Dates: start: 20091201
  2. PANTOPRAZOLE [Concomitant]
     Indication: GASTROOESOPHAGEAL REFLUX DISEASE
  3. EFFEXOR [Concomitant]
  4. BP MEDICATION [Concomitant]
  5. MULTI VIT [Concomitant]

REACTIONS (4)
  - CONSTIPATION [None]
  - ERUCTATION [None]
  - FLATULENCE [None]
  - SENSATION OF FOREIGN BODY [None]
